FAERS Safety Report 5466205-6 (Version None)
Quarter: 2007Q3

REPORT INFORMATION
  Report Type: 
  Country: None (occurrence: None)
  Receive Date: 20070924
  Receipt Date: 20070913
  Transmission Date: 20080115
  Serious: Yes (Other)
  Sender: FDA-Public Use
  Company Number: US-PFIZER INC-2007075850

PATIENT
  Sex: Male

DRUGS (1)
  1. LYRICA [Suspect]
     Indication: PAIN

REACTIONS (4)
  - ABASIA [None]
  - DIZZINESS [None]
  - DRUG INEFFECTIVE [None]
  - DRUG INTOLERANCE [None]
